FAERS Safety Report 9116803 (Version 1)
Quarter: 2013Q1

REPORT INFORMATION
  Report Type: Spontaneous
  Country: US (occurrence: US)
  Receive Date: 20130225
  Receipt Date: 20130225
  Transmission Date: 20140127
  Serious: Yes (Other)
  Sender: FDA-Public Use
  Company Number: US-CELGENEUS-163-21880-13022871

PATIENT
  Sex: Male

DRUGS (1)
  1. REVLIMID [Suspect]
     Indication: CANCER PAIN
     Dosage: 25 MILLIGRAM
     Route: 048
     Dates: start: 201101, end: 201301

REACTIONS (1)
  - Oesophageal carcinoma [Unknown]
